FAERS Safety Report 17686664 (Version 1)
Quarter: 2020Q2

REPORT INFORMATION
  Report Type: Spontaneous
  Country: IT (occurrence: IT)
  Receive Date: 20200420
  Receipt Date: 20200420
  Transmission Date: 20200714
  Serious: Yes (Death)
  Sender: FDA-Public Use
  Company Number: IT-CELLTRION INC.-2020IT021701

PATIENT

DRUGS (4)
  1. INFLIXIMAB (UNKNOWN) [Suspect]
     Active Substance: INFLIXIMAB
     Indication: CERVICOBRACHIAL SYNDROME
     Dosage: 5 MG/KG
     Route: 065
  2. METHYLPREDNISOLONE. [Concomitant]
     Active Substance: METHYLPREDNISOLONE
     Indication: DYSARTHRIA
     Dosage: 1 MG/KG
     Route: 065
  3. METHYLPREDNISOLONE. [Concomitant]
     Active Substance: METHYLPREDNISOLONE
     Indication: DYSPHAGIA
  4. METHYLPREDNISOLONE. [Concomitant]
     Active Substance: METHYLPREDNISOLONE
     Indication: DYSPHONIA
     Dosage: 2 MG/KG
     Route: 065

REACTIONS (5)
  - Cervicobrachial syndrome [Fatal]
  - Toxicity to various agents [Unknown]
  - Malignant neoplasm progression [Fatal]
  - Off label use [Unknown]
  - Product use in unapproved indication [Unknown]
